FAERS Safety Report 7227881-0 (Version None)
Quarter: 2010Q4

REPORT INFORMATION
  Report Type: 
  Country: None (occurrence: None)
  Receive Date: 20101126
  Receipt Date: 20100916
  Transmission Date: 20110411
  Serious: No
  Sender: FDA-Public Use
  Company Number: 313567

PATIENT
  Age: 45 Year
  Sex: Male

DRUGS (4)
  1. VICTOZA [Suspect]
     Indication: TYPE 2 DIABETES MELLITUS
     Dosage: 1.8 MG, QD, SUBCUTANEOUS1.2 MG, QD, SUBCUTANEOUS, 0.6 MG, QD, SUBCUTANEOUS
     Route: 058
  2. FORTAMET [Concomitant]
  3. ALTACE [Concomitant]
  4. CRESTOR [Concomitant]

REACTIONS (4)
  - CONSTIPATION [None]
  - GASTROOESOPHAGEAL REFLUX DISEASE [None]
  - MYALGIA [None]
  - WEIGHT DECREASED [None]
